FAERS Safety Report 19214477 (Version 3)
Quarter: 2022Q2

REPORT INFORMATION
  Report Type: Spontaneous
  Country: US (occurrence: US)
  Receive Date: 20210505
  Receipt Date: 20220505
  Transmission Date: 20220721
  Serious: Yes (Other)
  Sender: FDA-Public Use
  Company Number: US-UCBSA-2021019655

PATIENT
  Age: 41 Year
  Sex: Male
  Weight: 70 kg

DRUGS (3)
  1. CIMZIA [Suspect]
     Active Substance: CERTOLIZUMAB PEGOL
     Indication: Crohn^s disease
     Dosage: 400 MILLIGRAM, EV 4 WEEKS
     Route: 058
     Dates: start: 20210301, end: 20210413
  2. BUDESONIDE [Concomitant]
     Active Substance: BUDESONIDE
     Indication: Crohn^s disease
     Dosage: 3 MILLIGRAM, 3X/DAY (TID)
     Route: 048
  3. OMEPRAZOLE [Concomitant]
     Active Substance: OMEPRAZOLE
     Indication: Gastrooesophageal reflux disease
     Dosage: 40 MILLIGRAM, 2X/DAY (BID)

REACTIONS (3)
  - Groin abscess [Recovering/Resolving]
  - Subcutaneous abscess [Recovering/Resolving]
  - Abscess neck [Recovering/Resolving]

NARRATIVE: CASE EVENT DATE: 20210301
